FAERS Safety Report 6077328-5 (Version None)
Quarter: 2009Q1

REPORT INFORMATION
  Report Type: 
  Country: None (occurrence: None)
  Receive Date: 20090213
  Receipt Date: 20090204
  Transmission Date: 20090719
  Serious: Yes (Hospitalization)
  Sender: FDA-Public Use
  Company Number: B0557513A

PATIENT
  Age: 74 Year
  Sex: Male

DRUGS (7)
  1. ZOPHREN [Suspect]
     Indication: VOMITING
     Dosage: 8MG PER DAY
     Route: 048
     Dates: start: 20081001
  2. EMEND [Suspect]
     Indication: VOMITING
     Route: 048
     Dates: start: 20081001
  3. VAXIGRIP [Suspect]
     Route: 065
     Dates: start: 20081022, end: 20081022
  4. NEBIVOLOL [Concomitant]
  5. AMARYL [Concomitant]
  6. LASILIX [Concomitant]
  7. GLIMEPIRIDE [Concomitant]

REACTIONS (4)
  - EOSINOPHILIA [None]
  - PRURITUS [None]
  - RASH MACULO-PAPULAR [None]
  - RASH PAPULAR [None]
